FAERS Safety Report 6258754-8 (Version None)
Quarter: 2009Q3

REPORT INFORMATION
  Report Type: 
  Country: None (occurrence: None)
  Receive Date: 20090707
  Receipt Date: 20090703
  Transmission Date: 20100115
  Serious: Yes (Hospitalization, Disabling)
  Sender: FDA-Public Use
  Company Number: B0582377A

PATIENT
  Sex: Female

DRUGS (3)
  1. MELPHALAN [Suspect]
     Indication: MULTIPLE MYELOMA
     Dosage: 12MG PER DAY
     Route: 048
     Dates: start: 20080909
  2. BLINDED STUDY MEDICATION [Suspect]
     Indication: MULTIPLE MYELOMA
     Route: 048
     Dates: start: 20080909
  3. PREDNISONE [Suspect]
     Indication: MULTIPLE MYELOMA
     Dosage: 126MG PER DAY
     Route: 048
     Dates: start: 20080909

REACTIONS (2)
  - NEUTROPENIA [None]
  - UPPER RESPIRATORY TRACT INFECTION [None]
